FAERS Safety Report 24817903 (Version 2)
Quarter: 2025Q1

REPORT INFORMATION
  Report Type: Spontaneous
  Country: US (occurrence: US)
  Receive Date: 20250108
  Receipt Date: 20250123
  Transmission Date: 20250408
  Serious: No
  Sender: GLAXOSMITHKLINE
  Company Number: US-GSK-US2024165143

PATIENT
  Age: 67 Year
  Sex: Female

DRUGS (1)
  1. NUCALA [Suspect]
     Active Substance: MEPOLIZUMAB
     Indication: Product used for unknown indication
     Dates: start: 202412

REACTIONS (4)
  - Rhinorrhoea [Not Recovered/Not Resolved]
  - Sinus congestion [Unknown]
  - Lung disorder [Unknown]
  - Paranasal sinus hyposecretion [Unknown]

NARRATIVE: CASE EVENT DATE: 20241230
